FAERS Safety Report 17152130 (Version 1)
Quarter: 2019Q4

REPORT INFORMATION
  Report Type: Spontaneous
  Country: NL (occurrence: PT)
  Receive Date: 20191213
  Receipt Date: 20191213
  Transmission Date: 20200122
  Serious: Yes (Hospitalization)
  Sender: FDA-Public Use
  Company Number: PT-FRESENIUS KABI-FK201913618

PATIENT
  Age: 56 Year
  Sex: Female

DRUGS (6)
  1. ATOVAQUONE. [Concomitant]
     Active Substance: ATOVAQUONE
     Indication: PROPHYLAXIS
     Dosage: 1500 MG, QD (1500 MG, 1X/DAY)
     Route: 048
     Dates: start: 20190506
  2. RANITIDINE. [Concomitant]
     Active Substance: RANITIDINE
     Indication: PROPHYLAXIS AGAINST GASTROINTESTINAL ULCER
     Dosage: 150 MG, QD (150 MG, 1X/DAY)
     Route: 048
     Dates: start: 20190506
  3. CYTARABINE (MANUFACTURER UNKNOWN) [Suspect]
     Active Substance: CYTARABINE
     Indication: ACUTE MYELOID LEUKAEMIA
     Dosage: 40 MG, QD (40 MG, 1X/DAY)
     Route: 058
     Dates: start: 20190805, end: 20190814
  4. GLASDEGIB [Suspect]
     Active Substance: GLASDEGIB
     Indication: ACUTE MYELOID LEUKAEMIA
     Dosage: 100 MG, QD (100 MG, 1X/DAY)
     Route: 048
     Dates: start: 20190506, end: 20190826
  5. LEVOFLOXACIN. [Concomitant]
     Active Substance: LEVOFLOXACIN
     Indication: PROPHYLAXIS
     Dosage: 500 MG, QD (500 MG, 1X/DAY)
     Route: 048
     Dates: start: 20190729
  6. ITRACONAZOLE. [Concomitant]
     Active Substance: ITRACONAZOLE
     Indication: PROPHYLAXIS
     Dosage: 400 MG, QD (200 MG, 2X/DAY (12/12 H))
     Route: 048
     Dates: start: 20190506

REACTIONS (2)
  - Mucosal inflammation [Recovered/Resolved]
  - Febrile neutropenia [Recovered/Resolved]

NARRATIVE: CASE EVENT DATE: 20190821
